FAERS Safety Report 4891739-2 (Version None)
Quarter: 2005Q4

REPORT INFORMATION
  Report Type: 
  Country: None (occurrence: None)
  Receive Date: 20051220
  Receipt Date: 20051004
  Transmission Date: 20060501
  Serious: Yes (Other)
  Sender: FDA-Public Use
  Company Number: 420186

PATIENT
  Age: 60 Year
  Sex: Female
  Weight: 72.6 kg

DRUGS (1)
  1. BONIVA [Suspect]
     Indication: OSTEOPOROSIS
     Dosage: 150 MG 1 PER MONTH ORAL
     Route: 048
     Dates: start: 20051003

REACTIONS (6)
  - BACK PAIN [None]
  - CHEST PAIN [None]
  - CHILLS [None]
  - DYSPNOEA [None]
  - NAUSEA [None]
  - PAIN IN EXTREMITY [None]
